FAERS Safety Report 16048054 (Version 1)
Quarter: 2019Q1

REPORT INFORMATION
  Report Type: Spontaneous
  Country: AU (occurrence: AU)
  Receive Date: 20190307
  Receipt Date: 20190307
  Transmission Date: 20190418
  Serious: Yes (Hospitalization)
  Sender: FDA-Public Use
  Company Number: AU-MARKSANS PHARMA LIMITED-2063666

PATIENT
  Age: 51 Year
  Sex: Female

DRUGS (1)
  1. IBUPROFEN MOLECULE FROM AUSTRALIAN MARKET [Suspect]
     Active Substance: IBUPROFEN
     Route: 048

REACTIONS (1)
  - Anaphylactic reaction [Recovered/Resolved]
